FAERS Safety Report 6070999-9 (Version None)
Quarter: 2009Q1

REPORT INFORMATION
  Report Type: 
  Country: None (occurrence: None)
  Receive Date: 20090209
  Receipt Date: 20090203
  Transmission Date: 20090719
  Serious: Yes (Other)
  Sender: FDA-Public Use
  Company Number: B0529326A

PATIENT
  Age: 58 Year
  Sex: Female

DRUGS (4)
  1. SERETIDE [Suspect]
     Indication: ASTHMA
     Dosage: 1PUFF TWICE PER DAY
     Route: 055
     Dates: start: 20060301
  2. VENTOLIN [Suspect]
     Indication: ASTHMA
     Dosage: 100MCG VARIABLE DOSE
     Route: 055
     Dates: start: 20060301
  3. LEVOTHYROXINE SODIUM [Suspect]
     Indication: HYPOTHYROIDISM
     Dosage: 50MCG PER DAY
     Route: 048
     Dates: start: 20090101
  4. GABAPENTIN [Suspect]
     Indication: PAIN
     Dosage: 300MG AS REQUIRED
     Route: 048

REACTIONS (4)
  - ASTHMA [None]
  - DYSPNOEA [None]
  - LOWER RESPIRATORY TRACT INFECTION [None]
  - NASOPHARYNGITIS [None]
